FAERS Safety Report 26193603 (Version 1)
Quarter: 2025Q4

REPORT INFORMATION
  Report Type: Spontaneous
  Country: US (occurrence: None)
  Receive Date: 20251223
  Receipt Date: 20251223
  Transmission Date: 20260117
  Serious: Yes (Hospitalization)
  Sender: FDA-CTU
  Company Number: None

PATIENT
  Age: 49 Year
  Sex: Female

DRUGS (22)
  1. XOLAIR [Suspect]
     Active Substance: OMALIZUMAB
     Indication: Asthma
     Dosage: 300MG/2ML Q 2 WEEKS SUBCUTANEOUS
     Route: 058
     Dates: start: 20210924
  2. NOVOLOG [Concomitant]
     Active Substance: INSULIN ASPART
  3. LANTUS [Concomitant]
     Active Substance: INSULIN GLARGINE
  4. OLMESARTAN [Concomitant]
     Active Substance: OLMESARTAN
  5. GABAPENTI N [Concomitant]
  6. LORAZEPAM [Concomitant]
     Active Substance: LORAZEPAM
  7. METFORMIN [Concomitant]
     Active Substance: METFORMIN HYDROCHLORIDE
  8. MONTELUKAST [Concomitant]
     Active Substance: MONTELUKAST
  9. MYRBETRIQ [Concomitant]
     Active Substance: MIRABEGRON
  10. TRELEGY ELLI PTA [Concomitant]
  11. VENTOLIN [Concomitant]
     Active Substance: ALBUTEROL SULFATE
  12. CETIRIZINE [Concomitant]
     Active Substance: CETIRIZINE HYDROCHLORIDE
  13. MAGNESIUM [Concomitant]
     Active Substance: MAGNESIUM
  14. PANTOPRAZOLE [Concomitant]
     Active Substance: PANTOPRAZOLE
  15. PRAZOSIN [Concomitant]
     Active Substance: PRAZOSIN
  16. PRIMIDONE [Concomitant]
     Active Substance: PRIMIDONE
  17. TRAZODONE [Concomitant]
     Active Substance: TRAZODONE HYDROCHLORIDE
  18. TRINTELLIX [Concomitant]
     Active Substance: VORTIOXETINE HYDROBROMIDE
  19. VITAMIN C [Concomitant]
     Active Substance: ASCORBIC ACID
  20. VITAMIN D [Concomitant]
     Active Substance: VITAMIN D NOS
  21. ZINC [Concomitant]
     Active Substance: ZINC
  22. ZOFRAN [Concomitant]
     Active Substance: ONDANSETRON HYDROCHLORIDE

REACTIONS (1)
  - Dyspnoea [None]

NARRATIVE: CASE EVENT DATE: 20251207
